FAERS Safety Report 8095436-4 (Version None)
Quarter: 2012Q1

REPORT INFORMATION
  Report Type: 
  Country: None (occurrence: None)
  Receive Date: 20120129
  Receipt Date: 20111227
  Transmission Date: 20120608
  Serious: No
  Sender: FDA-Public Use
  Company Number: US-ABBOTT-11P-163-0887483-00

PATIENT
  Sex: Male
  Weight: 88.53 kg

DRUGS (2)
  1. HUMIRA [Suspect]
     Indication: CROHN'S DISEASE
     Dates: start: 20110501
  2. CANASA [Concomitant]
     Indication: CROHN'S DISEASE

REACTIONS (4)
  - DIARRHOEA [None]
  - INJECTION SITE RASH [None]
  - CHEST PAIN [None]
  - HEADACHE [None]
